FAERS Safety Report 6218628-5 (Version None)
Quarter: 2009Q2

REPORT INFORMATION
  Report Type: 
  Country: None (occurrence: None)
  Receive Date: 20090608
  Receipt Date: 20090602
  Transmission Date: 20091009
  Serious: Yes (Hospitalization)
  Sender: FDA-Public Use
  Company Number: AE-ROCHE-636118

PATIENT
  Age: 40 Year
  Sex: Female

DRUGS (2)
  1. PEGASYS [Suspect]
     Dosage: DOSE REPORTED AS 180 MMG.
     Route: 058
     Dates: start: 20081110
  2. RIBAVIRIN [Suspect]
     Route: 048
     Dates: start: 20081110

REACTIONS (1)
  - PHARYNGITIS [None]
